FAERS Safety Report 10890921 (Version 1)
Quarter: 2015Q1

REPORT INFORMATION
  Report Type: Report from Study
  Country: US (occurrence: US)
  Receive Date: 20150305
  Receipt Date: 20150305
  Transmission Date: 20150721
  Serious: Yes (Other)
  Sender: FDA-Public Use
  Company Number: US-BAYER-2014-174049

PATIENT
  Age: 64 Year
  Sex: Male
  Weight: 69.6 kg

DRUGS (13)
  1. LISINOPRIL. [Concomitant]
     Active Substance: LISINOPRIL
     Dosage: 10 MG, UNK
  2. SENOKOT [Concomitant]
     Active Substance: SENNOSIDES
     Dosage: 8.6 - 50 MG TABLET
  3. DULCOLAX [BISACODYL] [Concomitant]
     Dosage: 5 MG, UNK
  4. PRILOSEC [Concomitant]
     Active Substance: OMEPRAZOLE MAGNESIUM
     Dosage: 20 MG, UNK
  5. ZOFRAN [Concomitant]
     Active Substance: ONDANSETRON HYDROCHLORIDE
     Dosage: 8 MG, UNK
  6. NORCO [Concomitant]
     Active Substance: ACETAMINOPHEN\HYDROCODONE BITARTRATE
     Dosage: 5-325 MG
  7. BENADRYL [Concomitant]
     Active Substance: DIPHENHYDRAMINE HYDROCHLORIDE
     Dosage: 25 MG, UNK
  8. TOPROL XL [Concomitant]
     Active Substance: METOPROLOL SUCCINATE
     Dosage: 50 MG
  9. MILK OF MAGNESIA [Concomitant]
     Active Substance: MAGNESIUM HYDROXIDE
     Dosage: 400 MG/5 ML SUSPENSION
  10. REGORAFENIB [Suspect]
     Active Substance: REGORAFENIB
     Indication: DEDIFFERENTIATED LIPOSARCOMA
     Dosage: 160 MG, QD
     Route: 048
     Dates: start: 20141104, end: 20141118
  11. MAGNESIUM CITRATE [MAGNESIUM CITRATE] [Concomitant]
     Dosage: UNK
  12. COLACE [Concomitant]
     Active Substance: DOCUSATE SODIUM
     Dosage: 100 MG
  13. ADVIL [Concomitant]
     Active Substance: IBUPROFEN
     Dosage: 200 MG

REACTIONS (11)
  - Ventricular arrhythmia [Not Recovered/Not Resolved]
  - Atrial fibrillation [Recovered/Resolved]
  - Fatigue [None]
  - Dyspnoea [Not Recovered/Not Resolved]
  - Dehydration [Recovering/Resolving]
  - Dedifferentiated liposarcoma [None]
  - Dyspnoea exertional [Recovering/Resolving]
  - Decreased appetite [Not Recovered/Not Resolved]
  - Fatigue [None]
  - Pericardial effusion [None]
  - Fatigue [None]

NARRATIVE: CASE EVENT DATE: 20141118
